FAERS Safety Report 6085428-9 (Version None)
Quarter: 2009Q1

REPORT INFORMATION
  Report Type: 
  Country: None (occurrence: None)
  Receive Date: 20090218
  Receipt Date: 20090203
  Transmission Date: 20090719
  Serious: Yes (Death)
  Sender: FDA-Public Use
  Company Number: 2009165735

PATIENT
  Age: 80 Year
  Sex: Male
  Weight: 45 kg

DRUGS (3)
  1. FRAGMIN [Suspect]
     Indication: CORONARY ARTERY DISEASE
     Dosage: 5000 IU, 2X/DAY, SUBCUTANEOUS
     Route: 058
  2. ACETYSALICYLIC ACID (ACETYSALICYLIC ACID) [Concomitant]
  3. CLOPIDOGREL [Concomitant]

REACTIONS (1)
  - THROMBOSIS IN DEVICE [None]
